FAERS Safety Report 4668584-6 (Version None)
Quarter: 2005Q2

REPORT INFORMATION
  Report Type: 
  Country: None (occurrence: None)
  Receive Date: 20050523
  Receipt Date: 20050511
  Transmission Date: 20051028
  Serious: Yes (Death)
  Sender: FDA-Public Use
  Company Number: FR-BRISTOL-MYERS SQUIBB COMPANY-12974952

PATIENT
  Age: 23 Year
  Sex: Female

DRUGS (5)
  1. HOLOXAN [Suspect]
     Indication: PELVIC NEOPLASM
     Route: 042
     Dates: start: 20040428, end: 20040428
  2. UROMITEXAN [Suspect]
     Indication: PROPHYLAXIS
     Route: 042
     Dates: start: 20040428, end: 20040429
  3. DOXORUBICIN HCL [Suspect]
     Indication: PELVIC NEOPLASM
     Route: 042
     Dates: start: 20040427, end: 20040427
  4. CISPLATYL [Suspect]
     Indication: PELVIC NEOPLASM
     Route: 042
     Dates: start: 20040427, end: 20040427
  5. SOLU-MEDROL [Suspect]
     Indication: PELVIC NEOPLASM
     Route: 042
     Dates: start: 20040427, end: 20040428

REACTIONS (1)
  - RENAL FAILURE ACUTE [None]
